FAERS Safety Report 12889533 (Version 3)
Quarter: 2017Q4

REPORT INFORMATION
  Report Type: Spontaneous
  Country: US (occurrence: US)
  Receive Date: 20161027
  Receipt Date: 20171003
  Transmission Date: 20180320
  Serious: No
  Sender: FDA-Public Use
  Company Number: US-PFIZER INC-2016499330

PATIENT
  Age: 33 Year
  Sex: Male
  Weight: 88 kg

DRUGS (13)
  1. ALPRAZOLAM. [Interacting]
     Active Substance: ALPRAZOLAM
     Dosage: UNK
  2. LYRICA [Suspect]
     Active Substance: PREGABALIN
     Indication: NEURALGIA
     Dosage: 300 MG, 2X/DAY
     Route: 048
     Dates: start: 20160921
  3. ONDANSETRON [Concomitant]
     Active Substance: ONDANSETRON
     Dosage: UNK
  4. PERCOCET [Concomitant]
     Active Substance: ACETAMINOPHEN\OXYCODONE HYDROCHLORIDE
     Dosage: UNK
  5. LUVOX [Concomitant]
     Active Substance: FLUVOXAMINE MALEATE
     Dosage: UNK
  6. GABAPENTIN. [Concomitant]
     Active Substance: GABAPENTIN
     Dosage: UNK
  7. LYRICA [Suspect]
     Active Substance: PREGABALIN
     Dosage: 50 MG, UNK [UP TO 12 TIMES A DAY]
  8. NUCYNTA [Concomitant]
     Active Substance: TAPENTADOL HYDROCHLORIDE
     Dosage: UNK
  9. OXYCODONE TEREPHTHALATE [Concomitant]
     Active Substance: OXYCODONE TEREPHTHALATE
     Dosage: UNK
  10. DICYCLOMINE [Concomitant]
     Active Substance: DICYCLOMINE HYDROCHLORIDE
     Dosage: UNK
  11. LYRICA [Suspect]
     Active Substance: PREGABALIN
     Dosage: 300 MG, 3X/DAY
     Route: 048
  12. WELLBUTRIN [Concomitant]
     Active Substance: BUPROPION HYDROCHLORIDE
     Dosage: UNK
  13. OXYCODONE HYDROCHLORIDE. [Concomitant]
     Active Substance: OXYCODONE HYDROCHLORIDE
     Dosage: UNK

REACTIONS (5)
  - Product use issue [Unknown]
  - Pain [Unknown]
  - Withdrawal syndrome [Unknown]
  - Insomnia [Unknown]
  - Prescribed overdose [Unknown]
